FAERS Safety Report 5726305-X (Version None)
Quarter: 2008Q2

REPORT INFORMATION
  Report Type: 
  Country: None (occurrence: None)
  Receive Date: 20080502
  Receipt Date: 20080422
  Transmission Date: 20081010
  Serious: Yes (Other)
  Sender: FDA-Public Use
  Company Number: FR-JNJFOC-20080406097

PATIENT

DRUGS (1)
  1. INFLIXIMAB [Suspect]
     Indication: UVEITIS
     Route: 042

REACTIONS (1)
  - VISCERAL LEISHMANIASIS [None]
